FAERS Safety Report 12094744 (Version 1)
Quarter: 2016Q1

REPORT INFORMATION
  Report Type: Spontaneous
  Country: US (occurrence: US)
  Receive Date: 20160219
  Receipt Date: 20160219
  Transmission Date: 20160526
  Serious: No
  Sender: FDA-Public Use
  Company Number: GXBR2015US002284

PATIENT
  Age: 77 Year
  Sex: Female

DRUGS (6)
  1. VALSARTAN. [Concomitant]
     Active Substance: VALSARTAN
     Dosage: UNK DF, UNK
  2. LABETALOL HYDROCHLORIDE TABLETS, USP [Suspect]
     Active Substance: LABETALOL HYDROCHLORIDE
     Indication: HYPERTENSION
     Dosage: UNK DF, BID
     Route: 048
     Dates: start: 20151002, end: 20151003
  3. NITROSTAT [Concomitant]
     Active Substance: NITROGLYCERIN
     Dosage: UNK DF, UNK
  4. POTASSIUM [Concomitant]
     Active Substance: POTASSIUM
     Dosage: UNK DF, UNK
  5. INDAPAMIDE. [Concomitant]
     Active Substance: INDAPAMIDE
     Dosage: UNK DF, UNK
  6. AMLODIPINE BESILATE [Concomitant]
     Active Substance: AMLODIPINE BESYLATE
     Dosage: UNK DF, UNK

REACTIONS (4)
  - Urinary incontinence [Recovered/Resolved]
  - Formication [Recovered/Resolved]
  - Emotional distress [Recovered/Resolved]
  - Muscular weakness [Recovered/Resolved]

NARRATIVE: CASE EVENT DATE: 20151003
